FAERS Safety Report 16131830 (Version 1)
Quarter: 2019Q2

REPORT INFORMATION
  Report Type: Spontaneous
  Country: US (occurrence: US)
  Receive Date: 20190328
  Receipt Date: 20190328
  Transmission Date: 20190711
  Serious: No
  Sender: FDA-Public Use
  Company Number: None

PATIENT
  Age: 25 Year
  Sex: Male
  Weight: 81 kg

DRUGS (1)
  1. DEXTROAMPHET SACCHARAT, AMPHET ASPARTATE, DEXTROAMPHET SULFATE AND AMPHET SULFAT [Suspect]
     Active Substance: AMPHETAMINE ASPARTATE\AMPHETAMINE SULFATE\DEXTROAMPHETAMINE SACCHARATE\DEXTROAMPHETAMINE SULFATE
     Indication: ATTENTION DEFICIT/HYPERACTIVITY DISORDER
     Dosage: ?          QUANTITY:1 TABLET(S);?
     Route: 048
     Dates: start: 20190226, end: 20190328

REACTIONS (10)
  - Muscle twitching [None]
  - Product availability issue [None]
  - Hyperhidrosis [None]
  - Discomfort [None]
  - Nasopharyngitis [None]
  - Body temperature increased [None]
  - Dark circles under eyes [None]
  - Product substitution issue [None]
  - Irritability [None]
  - Headache [None]

NARRATIVE: CASE EVENT DATE: 20190328
